FAERS Safety Report 11094671 (Version 11)
Quarter: 2019Q2

REPORT INFORMATION
  Report Type: Spontaneous
  Country: US (occurrence: US)
  Receive Date: 20150506
  Receipt Date: 20190429
  Transmission Date: 20190711
  Serious: Yes (Other)
  Sender: FDA-Public Use
  Company Number: US-PFIZER INC-2014027074

PATIENT
  Age: 55 Year
  Sex: Male
  Weight: 68 kg

DRUGS (27)
  1. TESTOSTERONE. [Concomitant]
     Active Substance: TESTOSTERONE
     Dosage: UNK
  2. LYRICA [Suspect]
     Active Substance: PREGABALIN
     Dosage: 100 MG, 4X/DAY
     Route: 048
     Dates: start: 20160315
  3. LYRICA [Suspect]
     Active Substance: PREGABALIN
     Dosage: 100 MG, 4X/DAY
     Route: 048
     Dates: start: 20160823
  4. LYRICA [Suspect]
     Active Substance: PREGABALIN
     Dosage: 100 MG, 4X/DAY
     Route: 048
     Dates: start: 20170814
  5. LYRICA [Suspect]
     Active Substance: PREGABALIN
     Dosage: 100 MG, 4X/DAY
     Route: 048
     Dates: start: 20180308
  6. PROAIR HFA [Concomitant]
     Active Substance: ALBUTEROL SULFATE
     Dosage: 2 PUFFS EVERY 4 HOURS AS NEEDED AND PRIOR TO EXERCISE IF NEEDED
     Route: 055
     Dates: start: 20160304, end: 2016
  7. KLONOPIN [Concomitant]
     Active Substance: CLONAZEPAM
     Indication: ANXIETY
     Dosage: 1 MG, 2X/DAY AS NEEDED
     Route: 048
     Dates: start: 20160304, end: 2016
  8. MS CONTIN [Concomitant]
     Active Substance: MORPHINE SULFATE
     Dosage: 60 MG, 2X/DAY
     Route: 048
     Dates: start: 20160304, end: 2016
  9. MS CONTIN [Concomitant]
     Active Substance: MORPHINE SULFATE
     Dosage: 60 MG, 2X/DAY
     Route: 048
     Dates: start: 20161206
  10. ASPIRIN (E.C.) [Concomitant]
     Active Substance: ASPIRIN
     Dosage: 81 MG, DAILY
     Route: 048
     Dates: start: 20151008
  11. KLONOPIN [Concomitant]
     Active Substance: CLONAZEPAM
     Dosage: 1 MG, AS NEEDED (2 (TWO) TIMES DAILY)
     Route: 048
     Dates: start: 20161206
  12. XYLOCAINE [Concomitant]
     Active Substance: LIDOCAINE HYDROCHLORIDE
     Indication: PAIN
     Dosage: 2 % JELLY A SMALL AMOUNT TO AFFECTED AREA TWICE A DAY AS NEEDED
     Dates: start: 20090407
  13. ZOLOFT [Concomitant]
     Active Substance: SERTRALINE HYDROCHLORIDE
     Dosage: 100 MG, 1X/DAY EVERY MORNING
     Route: 048
     Dates: start: 20160301, end: 201603
  14. ZOLOFT [Concomitant]
     Active Substance: SERTRALINE HYDROCHLORIDE
     Dosage: 100 MG, 1X/DAY EVERY MORNING
     Route: 048
     Dates: start: 20160304
  15. TESTOSTERONE CIPIONATE [Concomitant]
     Active Substance: TESTOSTERONE
     Dosage: 0.5 ML (100 MG TOTAL), EVERY 14 DAYS
     Route: 030
     Dates: start: 20161128
  16. FEXOFENADINE [Concomitant]
     Active Substance: FEXOFENADINE\FEXOFENADINE HYDROCHLORIDE
     Dosage: 180 MG, UNK
  17. LYRICA [Suspect]
     Active Substance: PREGABALIN
     Dosage: 100 MG, 4X/DAY
     Route: 048
     Dates: start: 20151201
  18. LYRICA [Suspect]
     Active Substance: PREGABALIN
     Dosage: 100 MG, 4X/DAY
     Route: 048
     Dates: start: 20161206
  19. MSIR [Concomitant]
     Active Substance: MORPHINE SULFATE
     Indication: PAIN
     Dosage: 15 MG, 3X/DAY AS NEEDED
     Route: 048
     Dates: start: 20160304, end: 2016
  20. PROAIR HFA [Concomitant]
     Active Substance: ALBUTEROL SULFATE
     Dosage: 2 DF, AS NEEDED (90 MCG/ACTUATION INHALER) (EVERY 4 HOURS AS NEEDED AND PRIOR TO EXERCISE IF NEEDED)
     Route: 055
     Dates: start: 20161028
  21. MSIR [Concomitant]
     Active Substance: MORPHINE SULFATE
     Dosage: 15 MG, AS NEEDED (3 (THREE) TIMES DAILY)
     Route: 048
     Dates: start: 20161206
  22. OMEPRAZOLE. [Concomitant]
     Active Substance: OMEPRAZOLE
     Dosage: 20 MG, UNK
  23. ALBUTEROL. [Concomitant]
     Active Substance: ALBUTEROL
     Dosage: UNK
  24. FLONASE [Concomitant]
     Active Substance: FLUTICASONE PROPIONATE
     Dosage: UNK
  25. ASA [Concomitant]
     Active Substance: ASPIRIN
     Dosage: 81 MG, UNK
  26. LYRICA [Suspect]
     Active Substance: PREGABALIN
     Indication: NEURALGIA
     Dosage: 1800 MG, DAILY
     Route: 048
     Dates: start: 2006
  27. MYCOSTATIN [Concomitant]
     Active Substance: NYSTATIN
     Dosage: 5 ML, 4X/DAY (500000 UNITS TOTAL)
     Route: 048
     Dates: start: 20160328

REACTIONS (9)
  - Movement disorder [Unknown]
  - Pain [Unknown]
  - Neuropathy peripheral [Unknown]
  - Intentional product misuse [Unknown]
  - Prescribed overdose [Unknown]
  - Drug ineffective [Unknown]
  - Ear pain [Unknown]
  - Product use issue [Unknown]
  - Eye pain [Unknown]

NARRATIVE: CASE EVENT DATE: 2006
